FAERS Safety Report 8286588-1 (Version None)
Quarter: 2012Q2

REPORT INFORMATION
  Report Type: 
  Country: None (occurrence: None)
  Receive Date: 20120416
  Receipt Date: 20120406
  Transmission Date: 20120825
  Serious: Yes (Hospitalization)
  Sender: FDA-Public Use
  Company Number: US-BAYER-2012-013081

PATIENT
  Age: 48 Year
  Sex: Female
  Weight: 93.878 kg

DRUGS (5)
  1. ELAVIL [Concomitant]
     Indication: FIBROMYALGIA
     Dosage: 50 MG, UNK
     Dates: start: 20020101
  2. ACIPHEX [Concomitant]
     Indication: GASTROOESOPHAGEAL REFLUX DISEASE
     Dosage: 20 MG, BID
  3. YASMIN [Suspect]
     Indication: CONTRACEPTION
     Dosage: UNK
     Dates: start: 20031201, end: 20040201
  4. CIPROFLOXACIN [Concomitant]
     Indication: WHITE BLOOD CELL DISORDER
     Dosage: UNK
     Dates: start: 20040101
  5. NYSTATIN [Concomitant]
     Indication: ORAL CANDIDIASIS
     Dosage: UNK
     Dates: start: 20040101

REACTIONS (6)
  - DYSPNOEA [None]
  - DIZZINESS [None]
  - MENTAL DISORDER [None]
  - ACUTE MYOCARDIAL INFARCTION [None]
  - INJURY [None]
  - OEDEMA [None]
